FAERS Safety Report 15751300 (Version 1)
Quarter: 2018Q4

REPORT INFORMATION
  Report Type: Report from Study
  Country: CA (occurrence: CA)
  Receive Date: 20181221
  Receipt Date: 20181221
  Transmission Date: 20190205
  Serious: Yes (Hospitalization)
  Sender: FDA-Public Use
  Company Number: PHHY2018CA189172

PATIENT
  Sex: Male

DRUGS (4)
  1. TOBRAMYCIN TEVA [Suspect]
     Active Substance: TOBRAMYCIN SULFATE
     Indication: PRODUCT USED FOR UNKNOWN INDICATION
     Dosage: UNK
     Route: 055
  2. TOBRAMYCIN SANDOZ [Suspect]
     Active Substance: TOBRAMYCIN
     Indication: PRODUCT USED FOR UNKNOWN INDICATION
     Dosage: UNK (20 YEARS AGO)
     Route: 055
  3. TOBRAMYCIN SANDOZ [Suspect]
     Active Substance: TOBRAMYCIN
     Dosage: UNK
     Route: 055
  4. TOBI PODHALER [Suspect]
     Active Substance: TOBRAMYCIN
     Indication: PRODUCT USED FOR UNKNOWN INDICATION
     Dosage: UNK (7 YEARS AGO)
     Route: 065

REACTIONS (2)
  - Total lung capacity decreased [Unknown]
  - Pulmonary congestion [Not Recovered/Not Resolved]
